FAERS Safety Report 5885213-4 (Version None)
Quarter: 2008Q3

REPORT INFORMATION
  Report Type: 
  Country: None (occurrence: None)
  Receive Date: 20080912
  Receipt Date: 20080906
  Transmission Date: 20090109
  Serious: Yes (Hospitalization)
  Sender: FDA-Public Use
  Company Number: 2008SP018444

PATIENT
  Age: 28 Year
  Sex: Male

DRUGS (4)
  1. PEG-INTRON [Suspect]
     Indication: HEPATITIS C
     Dosage: SC
     Route: 058
     Dates: start: 20080119
  2. RIBAVIRIN [Suspect]
     Indication: HEPATITIS C
     Dosage: PO
     Route: 048
     Dates: start: 20080119
  3. ANTIHYPERTENSIVE MEDICATION [Concomitant]
  4. MEDICATION [Concomitant]

REACTIONS (7)
  - APHASIA [None]
  - CONDITION AGGRAVATED [None]
  - HYPERTENSION [None]
  - IMMOBILE [None]
  - INJECTION SITE SWELLING [None]
  - INJECTION SITE WARMTH [None]
  - TREATMENT NONCOMPLIANCE [None]
